FAERS Safety Report 22295605 (Version 1)
Quarter: 2023Q2

REPORT INFORMATION
  Report Type: Spontaneous
  Country: US (occurrence: None)
  Receive Date: 20230507
  Receipt Date: 20230507
  Transmission Date: 20230721
  Serious: Yes (Disabling)
  Sender: FDA-Public Use
  Company Number: None

PATIENT
  Age: 44 Year
  Sex: Female

DRUGS (4)
  1. FLUTICASONE PROPIONATE [Suspect]
     Active Substance: FLUTICASONE PROPIONATE
     Indication: Multiple allergies
     Dosage: FREQUENCY : DAILY;?
     Route: 055
  2. OZEMPIC [Concomitant]
     Active Substance: SEMAGLUTIDE
  3. VITAMIN D [Concomitant]
     Active Substance: VITAMIN D NOS
  4. IRON [Concomitant]
     Active Substance: IRON

REACTIONS (1)
  - Nasal septum perforation [None]
